FAERS Safety Report 20689119 (Version 2)
Quarter: 2022Q2

REPORT INFORMATION
  Report Type: Report from Study
  Country: JP (occurrence: JP)
  Receive Date: 20220408
  Receipt Date: 20220610
  Transmission Date: 20220720
  Serious: No
  Sender: FDA-Public Use
  Company Number: JP-AMGEN-JPNSP2021205815

PATIENT
  Age: 87 Year
  Sex: Male
  Weight: 65.8 kg

DRUGS (1)
  1. EVOLOCUMAB [Suspect]
     Active Substance: EVOLOCUMAB
     Indication: Hypocholesterolaemia
     Dosage: 140 MILLIGRAM, Q2WK
     Route: 058

REACTIONS (3)
  - Drug effect less than expected [Unknown]
  - Low density lipoprotein increased [Unknown]
  - Product storage error [Unknown]

NARRATIVE: CASE EVENT DATE: 20211022
